FAERS Safety Report 4438454-7 (Version None)
Quarter: 2004Q3

REPORT INFORMATION
  Report Type: 
  Country: None (occurrence: None)
  Receive Date: 20040728
  Receipt Date: 20040331
  Transmission Date: 20050211
  Serious: No
  Sender: FDA-Public Use
  Company Number: USA040363039

PATIENT
  Age: 48 Year
  Sex: Male
  Weight: 86 kg

DRUGS (3)
  1. STRATTERA [Suspect]
     Indication: ATTENTION DEFICIT/HYPERACTIVITY DISORDER
     Dosage: 40 MG/2 DAY
     Dates: start: 20040301
  2. ZOCOR [Concomitant]
  3. OMEPRAZOLE [Concomitant]

REACTIONS (11)
  - CHAPPED LIPS [None]
  - CONSTIPATION [None]
  - DRUG INEFFECTIVE [None]
  - DRY MOUTH [None]
  - DYSURIA [None]
  - MALAISE [None]
  - NAUSEA [None]
  - PILOERECTION [None]
  - PSYCHOMOTOR HYPERACTIVITY [None]
  - RASH MACULAR [None]
  - STOMATITIS [None]
